FAERS Safety Report 12389022 (Version 1)
Quarter: 2016Q2

REPORT INFORMATION
  Report Type: Spontaneous
  Country: US (occurrence: None)
  Receive Date: 20160519
  Receipt Date: 20160519
  Transmission Date: 20160815
  Serious: Yes (Hospitalization)
  Sender: FDA-Public Use
  Company Number: None

PATIENT
  Age: 32 Year
  Sex: Male

DRUGS (6)
  1. ORKAMBI [Suspect]
     Active Substance: IVACAFTOR\LUMACAFTOR
     Indication: CYSTIC FIBROSIS
     Dosage: 400-250MG
     Route: 048
     Dates: start: 20150615
  2. CAYSTON [Concomitant]
     Active Substance: AZTREONAM
  3. TOBRAMYCIN. [Concomitant]
     Active Substance: TOBRAMYCIN
  4. CORISTIN [Concomitant]
  5. AGUADEN [Concomitant]
  6. PULMOZYME [Concomitant]
     Active Substance: DORNASE ALFA

REACTIONS (2)
  - Disease complication [None]
  - Cystic fibrosis [None]

NARRATIVE: CASE EVENT DATE: 201605
